FAERS Safety Report 9666310 (Version 2)
Quarter: 2013Q4

REPORT INFORMATION
  Report Type: Report from Study
  Country: DO (occurrence: DO)
  Receive Date: 20131104
  Receipt Date: 20131118
  Transmission Date: 20140711
  Serious: Yes (Hospitalization)
  Sender: FDA-Public Use
  Company Number: DO-NOVOPROD-391307

PATIENT
  Age: 6 Week
  Sex: Female
  Weight: 2.49 kg

DRUGS (4)
  1. INSULIN DETEMIR FLEXPEN [Suspect]
     Indication: GESTATIONAL DIABETES
     Dosage: 8 IU, QD
     Route: 064
     Dates: start: 20130806
  2. INSULIN DETEMIR FLEXPEN [Suspect]
     Indication: GESTATIONAL DIABETES
     Dosage: 8 IU, QD
     Route: 064
     Dates: start: 20130806
  3. EUTIROX [Concomitant]
     Indication: PRODUCT USED FOR UNKNOWN INDICATION
     Dosage: 125 MG, QD
     Route: 064
  4. PROGESTERONE [Concomitant]
     Dosage: 100 MG, QD
     Route: 064

REACTIONS (2)
  - Premature baby [Unknown]
  - Foetal exposure during pregnancy [Unknown]
